FAERS Safety Report 10262838 (Version 2)
Quarter: 2014Q2

REPORT INFORMATION
  Report Type: Report from Study
  Country: US (occurrence: US)
  Receive Date: 20140626
  Receipt Date: 20140626
  Transmission Date: 20141212
  Serious: Yes (Other)
  Sender: FDA-Public Use
  Company Number: US-MYLANLABS-2013S1018690

PATIENT
  Age: 62 Year
  Sex: Male

DRUGS (6)
  1. CLOZAPINE TABLETS [Suspect]
     Indication: SCHIZOPHRENIA
     Dates: end: 20131028
  2. ZOLPIDEM [Concomitant]
  3. QUETIAPINE [Concomitant]
  4. LORAZEPAM [Concomitant]
  5. NAMENDA [Concomitant]
  6. DIVALPROEX [Concomitant]

REACTIONS (1)
  - Granulocytopenia [Recovered/Resolved]
